FAERS Safety Report 5915236-8 (Version None)
Quarter: 2008Q4

REPORT INFORMATION
  Report Type: 
  Country: None (occurrence: None)
  Receive Date: 20081010
  Receipt Date: 20080930
  Transmission Date: 20090506
  Serious: Yes (Hospitalization)
  Sender: FDA-Public Use
  Company Number: PL-JNJFOC-20081001099

PATIENT
  Sex: Male

DRUGS (3)
  1. TRAMAL [Suspect]
     Indication: BACK PAIN
     Route: 048
  2. MYOLASTAN [Suspect]
     Indication: BACK PAIN
     Route: 048
  3. KATADOLAN [Suspect]
     Indication: BACK PAIN
     Route: 048

REACTIONS (5)
  - BALANCE DISORDER [None]
  - DIPLOPIA [None]
  - DIZZINESS [None]
  - ROAD TRAFFIC ACCIDENT [None]
  - SOMNOLENCE [None]
